FAERS Safety Report 5738844-6 (Version None)
Quarter: 2008Q2

REPORT INFORMATION
  Report Type: 
  Country: None (occurrence: None)
  Receive Date: 20080515
  Receipt Date: 20080409
  Transmission Date: 20081010
  Serious: No
  Sender: FDA-Public Use
  Company Number: A0721903A

PATIENT
  Age: 52 Year
  Sex: Male

DRUGS (2)
  1. VERAMYST [Suspect]
     Route: 045
  2. LOVASTATIN [Concomitant]

REACTIONS (1)
  - ANXIETY [None]
